FAERS Safety Report 14347576 (Version 1)
Quarter: 2018Q1

REPORT INFORMATION
  Report Type: Spontaneous
  Country: CN (occurrence: CN)
  Receive Date: 20180103
  Receipt Date: 20180103
  Transmission Date: 20180509
  Serious: Yes (Death, Hospitalization, Other)
  Sender: FDA-Public Use
  Company Number: CN-BAYER-2017-154136

PATIENT
  Age: 29 Year
  Sex: Male
  Weight: 85 kg

DRUGS (1)
  1. NEXAVAR [Suspect]
     Active Substance: SORAFENIB
     Indication: RENAL CELL CARCINOMA
     Dosage: 400 MG, BID
     Route: 048
     Dates: start: 20170331, end: 201706

REACTIONS (12)
  - Drug-induced liver injury [None]
  - Peripheral venous disease [None]
  - Pericardial effusion [None]
  - Yellow skin [None]
  - Ocular icterus [None]
  - Chills [None]
  - Cholecystitis [None]
  - Chromaturia [None]
  - Death [Fatal]
  - Lung infection [None]
  - Pyrexia [Recovered/Resolved]
  - Palmar-plantar erythrodysaesthesia syndrome [None]

NARRATIVE: CASE EVENT DATE: 2017
